FAERS Safety Report 19097302 (Version 2)
Quarter: 2021Q2

REPORT INFORMATION
  Report Type: Spontaneous
  Country: US (occurrence: US)
  Receive Date: 20210406
  Receipt Date: 20210603
  Transmission Date: 20210717
  Serious: Yes (Other)
  Sender: FDA-Public Use
  Company Number: US-PFIZER INC-2021319025

PATIENT
  Age: 75 Year
  Sex: Male

DRUGS (3)
  1. SUTENT [Suspect]
     Active Substance: SUNITINIB MALATE
     Indication: GASTROINTESTINAL STROMAL TUMOUR
     Dosage: 12.5 MG, ABOUT 4?5 WEEKS
  2. SUTENT [Suspect]
     Active Substance: SUNITINIB MALATE
     Dosage: UNK (TRYING TO INCREASE TO A 25MG DOSAGE; HE WAS UP TO 25 )
  3. GLIVA [Concomitant]
     Dosage: (HALDF THE DOSE )

REACTIONS (7)
  - Muscle spasms [Recovered/Resolved]
  - Gait disturbance [Unknown]
  - Liver injury [Recovered/Resolved]
  - Dysstasia [Unknown]
  - Periarthritis [Recovered/Resolved]
  - Palmar-plantar erythrodysaesthesia syndrome [Unknown]
  - Musculoskeletal disorder [Unknown]
